FAERS Safety Report 4886470-3 (Version None)
Quarter: 2006Q1

REPORT INFORMATION
  Report Type: 
  Country: None (occurrence: None)
  Receive Date: 20060120
  Receipt Date: 20060111
  Transmission Date: 20060701
  Serious: Yes (Other)
  Sender: FDA-Public Use
  Company Number: IT-BRISTOL-MYERS SQUIBB COMPANY-13243332

PATIENT

DRUGS (3)
  1. COAPROVEL TABS [Suspect]
     Route: 048
  2. PLAVIX [Suspect]
     Route: 048
     Dates: end: 20051222
  3. PLATELET AGGREGATION INHIBITOR [Suspect]

REACTIONS (1)
  - PANCYTOPENIA [None]
